FAERS Safety Report 12658864 (Version 1)
Quarter: 2016Q3

REPORT INFORMATION
  Report Type: Spontaneous
  Country: US (occurrence: None)
  Receive Date: 20160816
  Receipt Date: 20160816
  Transmission Date: 20161109
  Serious: Yes (Hospitalization)
  Sender: FDA-Public Use
  Company Number: None

PATIENT
  Age: 32 Year
  Sex: Male

DRUGS (4)
  1. IBUPROFEN. [Concomitant]
     Active Substance: IBUPROFEN
  2. STELARA [Suspect]
     Active Substance: USTEKINUMAB
     Indication: PSORIASIS
     Dosage: 90 MG ONCE EVERY 12 WEEK SUBCUTANEOUS
     Route: 058
     Dates: start: 20151111, end: 20160801
  3. MULTIVITAMIN [Concomitant]
     Active Substance: VITAMINS
  4. CLARITIN [Concomitant]
     Active Substance: LORATADINE

REACTIONS (1)
  - Sepsis [None]

NARRATIVE: CASE EVENT DATE: 20160801
